FAERS Safety Report 11184894 (Version 1)
Quarter: 2015Q2

REPORT INFORMATION
  Report Type: Spontaneous
  Country: US (occurrence: US)
  Receive Date: 20150612
  Receipt Date: 20150612
  Transmission Date: 20150821
  Serious: Yes (Hospitalization)
  Sender: FDA-Public Use
  Company Number: US-BAUSCH-BL-2015-014901

PATIENT
  Age: 71 Year
  Sex: Female

DRUGS (3)
  1. THEOPHYLLINE [Suspect]
     Active Substance: THEOPHYLLINE ANHYDROUS
     Indication: SLEEP APNOEA SYNDROME
     Route: 048
  2. METOPROLOL [Concomitant]
     Active Substance: METOPROLOL
     Indication: PRODUCT USED FOR UNKNOWN INDICATION
  3. ASPIRIN. [Concomitant]
     Active Substance: ASPIRIN
     Indication: PRODUCT USED FOR UNKNOWN INDICATION

REACTIONS (13)
  - Off label use [Unknown]
  - Acute psychosis [Recovered/Resolved]
  - Overdose [Recovered/Resolved]
  - Atrial fibrillation [Recovered/Resolved]
  - Generalised tonic-clonic seizure [Recovered/Resolved]
  - Treatment noncompliance [Unknown]
  - Hallucination, auditory [Recovered/Resolved]
  - Ventricular tachycardia [Recovered/Resolved]
  - Suicidal ideation [Recovered/Resolved]
  - Acidosis [Recovered/Resolved]
  - Postictal state [Unknown]
  - Suicide attempt [Recovered/Resolved]
  - Somnolence [Unknown]
